FAERS Safety Report 7740533-3 (Version None)
Quarter: 2011Q3

REPORT INFORMATION
  Report Type: 
  Country: None (occurrence: None)
  Receive Date: 20110909
  Receipt Date: 20110905
  Transmission Date: 20111222
  Serious: Yes (Other)
  Sender: FDA-Public Use
  Company Number: BR-PFIZER INC-2011206958

PATIENT
  Age: 53 Year
  Sex: Male
  Weight: 62 kg

DRUGS (4)
  1. SIMVASTATIN [Concomitant]
     Indication: BLOOD CHOLESTEROL INCREASED
     Dosage: UNK
     Dates: start: 20100101
  2. VARENICLINE TARTRATE [Suspect]
     Indication: SMOKING CESSATION THERAPY
     Dosage: UNK
     Route: 048
     Dates: start: 20110801, end: 20110830
  3. MODURETIC 5-50 [Concomitant]
     Indication: HYPERTENSION
     Dosage: UNK
     Dates: start: 20100101
  4. CITALOPRAM [Concomitant]
     Indication: STRESS
     Dosage: UNK
     Dates: start: 20100101

REACTIONS (3)
  - HYPERSENSITIVITY [None]
  - BLISTER [None]
  - PRURITUS [None]
